FAERS Safety Report 13284555 (Version 1)
Quarter: 2017Q1

REPORT INFORMATION
  Report Type: Spontaneous
  Country: US (occurrence: US)
  Receive Date: 20170301
  Receipt Date: 20170301
  Transmission Date: 20170428
  Serious: Yes (Hospitalization, Other)
  Sender: FDA-Public Use
  Company Number: US-TEVA-743491USA

PATIENT
  Sex: Male
  Weight: 122.58 kg

DRUGS (5)
  1. DIVALPROEX ER [Concomitant]
     Active Substance: DIVALPROEX SODIUM
  2. TELMISARTAN. [Concomitant]
     Active Substance: TELMISARTAN
  3. COPAXONE [Suspect]
     Active Substance: GLATIRAMER ACETATE
     Indication: MULTIPLE SCLEROSIS
     Dosage: ONCE DAILY
     Dates: start: 200109
  4. SERTRALINE [Concomitant]
     Active Substance: SERTRALINE HYDROCHLORIDE
  5. VITAMIN D [Concomitant]
     Active Substance: CHOLECALCIFEROL
     Dosage: 10,000

REACTIONS (5)
  - Hypoaesthesia [Unknown]
  - Band sensation [Unknown]
  - Chest pain [Unknown]
  - Psychotic disorder [Unknown]
  - Cellulitis [Unknown]
